FAERS Safety Report 21166396 (Version 1)
Quarter: 2022Q3

REPORT INFORMATION
  Report Type: Spontaneous
  Country: US (occurrence: None)
  Receive Date: 20220803
  Receipt Date: 20220803
  Transmission Date: 20221027
  Serious: Yes (Other)
  Sender: FDA-Public Use
  Company Number: 2022A268317

PATIENT
  Sex: Female
  Weight: 65.8 kg

DRUGS (1)
  1. FULVESTRANT [Suspect]
     Active Substance: FULVESTRANT
     Indication: Ovarian cancer
     Route: 030

REACTIONS (10)
  - Hypotension [Not Recovered/Not Resolved]
  - Feeling jittery [Unknown]
  - Nervousness [Unknown]
  - Dizziness [Unknown]
  - Vertigo [Unknown]
  - Abdominal distension [Unknown]
  - Muscular weakness [Unknown]
  - Vocal cord disorder [Unknown]
  - Dyskinesia [Unknown]
  - Off label use [Unknown]
